FAERS Safety Report 16633187 (Version 1)
Quarter: 2019Q3

REPORT INFORMATION
  Report Type: Spontaneous
  Country: IT (occurrence: IT)
  Receive Date: 20190725
  Receipt Date: 20190725
  Transmission Date: 20191004
  Serious: Yes (Other)
  Sender: FDA-Public Use
  Company Number: IT-AMGEN-ITASP2019074584

PATIENT
  Age: 51 Year
  Sex: Male

DRUGS (1)
  1. AMGEVITA [Suspect]
     Active Substance: ADALIMUMAB
     Indication: CROHN^S DISEASE
     Dosage: 40 MILLIGRAM, QWK
     Route: 058
     Dates: start: 20181101, end: 20190429

REACTIONS (2)
  - Drug ineffective [Not Recovered/Not Resolved]
  - Crohn^s disease [Not Recovered/Not Resolved]
